FAERS Safety Report 6258055-8 (Version None)
Quarter: 2009Q3

REPORT INFORMATION
  Report Type: 
  Country: None (occurrence: None)
  Receive Date: 20090707
  Receipt Date: 20090626
  Transmission Date: 20100115
  Serious: Yes (Other)
  Sender: FDA-Public Use
  Company Number: FR-JNJFOC-20090600606

PATIENT
  Age: 65 Year
  Sex: Female
  Weight: 77 kg

DRUGS (4)
  1. REMICADE [Suspect]
     Dosage: 9TH INFUSION
     Route: 042
  2. REMICADE [Suspect]
     Indication: CROHN'S DISEASE
     Dosage: DURATION OF 1 YEAR
     Route: 042
  3. ENTOCORT EC [Concomitant]
     Indication: CROHN'S DISEASE
  4. HYDROCORTISONE [Concomitant]
     Indication: PREMEDICATION

REACTIONS (4)
  - ASPHYXIA [None]
  - ERYTHEMA [None]
  - INFUSION RELATED REACTION [None]
  - MEMORY IMPAIRMENT [None]
